FAERS Safety Report 20053278 (Version 1)
Quarter: 2021Q4

REPORT INFORMATION
  Report Type: Spontaneous
  Country: US (occurrence: US)
  Receive Date: 20211110
  Receipt Date: 20211110
  Transmission Date: 20220303
  Serious: No
  Sender: FDA-Public Use
  Company Number: US-PFIZER INC-202101361063

PATIENT

DRUGS (1)
  1. AMLODIPINE BESYLATE [Suspect]
     Active Substance: AMLODIPINE BESYLATE
     Indication: Vestibular migraine
     Dosage: UNK

REACTIONS (4)
  - Vestibular migraine [Unknown]
  - Condition aggravated [Unknown]
  - Joint swelling [Unknown]
  - Off label use [Unknown]
